FAERS Safety Report 6676538-3 (Version None)
Quarter: 2010Q2

REPORT INFORMATION
  Report Type: 
  Country: None (occurrence: None)
  Receive Date: 20100412
  Receipt Date: 20100401
  Transmission Date: 20101027
  Serious: Yes (Hospitalization)
  Sender: FDA-Public Use
  Company Number: CH-SANOFI-AVENTIS-2010SA018875

PATIENT

DRUGS (6)
  1. ZOLPIDEM [Suspect]
     Dosage: 10 MG, 7 TIMES A DAY
     Route: 064
     Dates: start: 20080101
  2. MIRTAZAPINE [Suspect]
     Route: 064
     Dates: start: 20080101
  3. ZYPREXA [Suspect]
     Route: 064
     Dates: start: 20080101
  4. LITHIUM SULFATE [Suspect]
     Route: 064
     Dates: start: 20080101
  5. SERESTA [Suspect]
     Route: 064
  6. QUETIAPINE FUMARATE [Suspect]
     Route: 064
     Dates: start: 20080101

REACTIONS (3)
  - DRUG EXPOSURE DURING PREGNANCY [None]
  - DRUG WITHDRAWAL SYNDROME NEONATAL [None]
  - NEONATAL RESPIRATORY DISTRESS SYNDROME [None]
